FAERS Safety Report 16894819 (Version 1)
Quarter: 2019Q4

REPORT INFORMATION
  Report Type: Spontaneous
  Country: SE (occurrence: SE)
  Receive Date: 20191008
  Receipt Date: 20191008
  Transmission Date: 20200122
  Serious: Yes (Life-Threatening)
  Sender: FDA-Public Use
  Company Number: SE-BRACCO-2019SE04974

PATIENT
  Age: 53 Year
  Sex: Male

DRUGS (1)
  1. SONOVUE [Suspect]
     Active Substance: SULFUR HEXAFLUORIDE
     Indication: ECHOCARDIOGRAM
     Dosage: 1.5 ML, SINGLE
     Route: 042
     Dates: start: 20191002, end: 20191002

REACTIONS (3)
  - Malaise [Recovered/Resolved]
  - Paraesthesia [Recovered/Resolved]
  - Blood pressure systolic abnormal [Recovered/Resolved]

NARRATIVE: CASE EVENT DATE: 20191002
